FAERS Safety Report 17569294 (Version 2)
Quarter: 2023Q1

REPORT INFORMATION
  Report Type: Spontaneous
  Country: DE (occurrence: DE)
  Receive Date: 20200322
  Receipt Date: 20230131
  Transmission Date: 20230417
  Serious: Yes (Hospitalization)
  Sender: FDA-Public Use
  Company Number: None

PATIENT
  Age: 47 Year
  Sex: Male

DRUGS (3)
  1. METAMIZOL [Concomitant]
     Active Substance: METAMIZOLE SODIUM
     Dosage: 500 MG, IF NECESSARY
  2. DICLOFENAC [Interacting]
     Active Substance: DICLOFENAC
     Dosage: IF NECESSARY
  3. IBUPROFEN [Interacting]
     Active Substance: IBUPROFEN
     Dosage: IF NECESSARY

REACTIONS (4)
  - Abdominal pain upper [Unknown]
  - Chills [Unknown]
  - Product prescribing error [Unknown]
  - Labelled drug-drug interaction medication error [Unknown]
